FAERS Safety Report 25900024 (Version 2)
Quarter: 2025Q4

REPORT INFORMATION
  Report Type: Spontaneous
  Country: US (occurrence: US)
  Receive Date: 20251009
  Receipt Date: 20251014
  Transmission Date: 20260118
  Serious: Yes (Other)
  Sender: BRISTOL-MYERS SQUIBB COMPANY
  Company Number: US-BRISTOL-MYERS SQUIBB COMPANY-2025-135692

PATIENT
  Age: 76 Year
  Sex: Female

DRUGS (2)
  1. REVLIMID [Suspect]
     Active Substance: LENALIDOMIDE
     Indication: Product used for unknown indication
     Dosage: TAKE FOR 7 DAYS ON THEN 21 DAYS OFF.
  2. REVLIMID [Suspect]
     Active Substance: LENALIDOMIDE
     Dosage: TAKE FOR 7 DAYS ON THEN 21 DAYS OFF.

REACTIONS (3)
  - Fatigue [Recovering/Resolving]
  - Pruritus [Recovering/Resolving]
  - Thrombocytopenia [Recovering/Resolving]
